FAERS Safety Report 7939660-7 (Version None)
Quarter: 2011Q4

REPORT INFORMATION
  Report Type: 
  Country: None (occurrence: None)
  Receive Date: 20111125
  Receipt Date: 20111116
  Transmission Date: 20120403
  Serious: Yes (Other)
  Sender: FDA-Public Use
  Company Number: PHEH2008US10745

PATIENT
  Sex: Female
  Weight: 58.957 kg

DRUGS (3)
  1. PARLODEL [Suspect]
     Dosage: UNK
  2. PARLODEL [Suspect]
     Indication: PITUITARY TUMOUR
     Dosage: 5 MG, 5QD
     Route: 048
     Dates: start: 20080905
  3. BROMOCRIPTINE MESYLATE [Suspect]
     Dosage: 5 MG, 5 TIMES DAILY
     Dates: start: 20080905

REACTIONS (5)
  - LOSS OF CONSCIOUSNESS [None]
  - VOMITING [None]
  - FALL [None]
  - MATERNAL EXPOSURE DURING PREGNANCY [None]
  - NAUSEA [None]
